FAERS Safety Report 23203656 (Version 1)
Quarter: 2023Q4

REPORT INFORMATION
  Report Type: Spontaneous
  Country: US (occurrence: US)
  Receive Date: 20231120
  Receipt Date: 20231120
  Transmission Date: 20240110
  Serious: Yes (Hospitalization)
  Sender: FDA-Public Use
  Company Number: US-EPICPHARMA-US-2023EPCLIT01765

PATIENT
  Age: 5 Year
  Sex: Male

DRUGS (16)
  1. GENTAMICIN SULFATE [Suspect]
     Active Substance: GENTAMICIN SULFATE
     Indication: Product used for unknown indication
     Dosage: 100 MG/L FOR 10 MINUTES, FLUSH FOR 5 MINUTES
     Route: 061
  2. AMPHOTERICIN B [Suspect]
     Active Substance: AMPHOTERICIN B
     Indication: Product used for unknown indication
     Dosage: 0.1% FOR 15 MINUTES, FLUSH FOR 5 MINUTES
     Route: 061
  3. AMPHOTERICIN B [Suspect]
     Active Substance: AMPHOTERICIN B
     Route: 061
  4. VANCOMYCIN [Suspect]
     Active Substance: VANCOMYCIN
     Indication: Product used for unknown indication
     Dosage: 100 MG/L FOR 10 MINUTES, FLUSH FOR 2.5 MINUTES
     Route: 061
  5. VANCOMYCIN [Suspect]
     Active Substance: VANCOMYCIN
     Route: 042
  6. VANCOMYCIN [Suspect]
     Active Substance: VANCOMYCIN
     Route: 061
  7. VANCOMYCIN [Suspect]
     Active Substance: VANCOMYCIN
     Route: 061
  8. MICONAZOLE [Suspect]
     Active Substance: MICONAZOLE
     Indication: Product used for unknown indication
     Route: 061
  9. MICONAZOLE [Suspect]
     Active Substance: MICONAZOLE
     Route: 061
  10. FLUCONAZOLE [Suspect]
     Active Substance: FLUCONAZOLE
     Indication: Product used for unknown indication
     Route: 048
  11. TOBRAMYCIN [Suspect]
     Active Substance: TOBRAMYCIN
     Indication: Product used for unknown indication
     Dosage: EACH 1 DROP EVERY 4 HOURS
     Route: 061
  12. TOBRAMYCIN [Suspect]
     Active Substance: TOBRAMYCIN
     Route: 061
  13. CEFTAZIDIME [Suspect]
     Active Substance: CEFTAZIDIME
     Indication: Product used for unknown indication
     Route: 065
  14. OFLOXACIN [Suspect]
     Active Substance: OFLOXACIN
     Indication: Product used for unknown indication
     Route: 047
  15. ATROPINE [Concomitant]
     Active Substance: ATROPINE\ATROPINE SULFATE
     Indication: Product used for unknown indication
     Route: 061
  16. FLUOROMETHOLONE [Concomitant]
     Active Substance: FLUOROMETHOLONE
     Indication: Product used for unknown indication
     Route: 047

REACTIONS (1)
  - Keratitis [Recovered/Resolved]
